FAERS Safety Report 24739459 (Version 2)
Quarter: 2024Q4

REPORT INFORMATION
  Report Type: Report from Study
  Country: FR (occurrence: FR)
  Receive Date: 20241216
  Receipt Date: 20241220
  Transmission Date: 20250115
  Serious: Yes (Other)
  Sender: DAIICHI
  Company Number: FR-DSJP-DS-2024-114472-FR

PATIENT
  Sex: Female

DRUGS (2)
  1. ENHERTU [Suspect]
     Active Substance: FAM-TRASTUZUMAB DERUXTECAN-NXKI
     Indication: HER2 low breast cancer
     Dosage: UNK, CYCLIC
     Route: 065
  2. ENHERTU [Suspect]
     Active Substance: FAM-TRASTUZUMAB DERUXTECAN-NXKI
     Indication: Breast cancer metastatic
     Dosage: UNK, CYCLIC
     Route: 065

REACTIONS (6)
  - Ascites [Unknown]
  - Aspartate aminotransferase abnormal [Recovering/Resolving]
  - Alanine aminotransferase abnormal [Recovered/Resolved]
  - Gamma-glutamyltransferase abnormal [Recovering/Resolving]
  - Blood alkaline phosphatase abnormal [Recovering/Resolving]
  - Blood lactate dehydrogenase abnormal [Recovering/Resolving]
